FAERS Safety Report 9200494 (Version 6)
Quarter: 2013Q4

REPORT INFORMATION
  Report Type: Spontaneous
  Country: US (occurrence: US)
  Receive Date: 20130329
  Receipt Date: 20131101
  Transmission Date: 20140711
  Serious: Yes (Hospitalization, Disabling)
  Sender: FDA-Public Use
  Company Number: US-009507513-1303USA012853

PATIENT
  Sex: 0
  Weight: 78.46 kg

DRUGS (2)
  1. NUVARING [Suspect]
     Indication: CONTRACEPTION
     Dosage: UNK
     Dates: start: 20090407, end: 201105
  2. NUVARING [Suspect]
     Indication: MENSTRUATION IRREGULAR

REACTIONS (10)
  - Deep vein thrombosis [Recovered/Resolved]
  - Keratomileusis [Unknown]
  - Staphylococcal infection [Unknown]
  - Off label use [Unknown]
  - Restless legs syndrome [Unknown]
  - Metabolic syndrome [Unknown]
  - Rhinitis allergic [Unknown]
  - Constipation [Recovering/Resolving]
  - Ligament pain [Unknown]
  - Pain in extremity [Recovering/Resolving]
